FAERS Safety Report 6878317-0 (Version None)
Quarter: 2010Q3

REPORT INFORMATION
  Report Type: 
  Country: None (occurrence: None)
  Receive Date: 20100728
  Receipt Date: 20100713
  Transmission Date: 20110219
  Serious: No
  Sender: FDA-Public Use
  Company Number: US-TEVA-242165USA

PATIENT
  Sex: Female
  Weight: 61.29 kg

DRUGS (10)
  1. ALBUTEROL SULFATE AUTOHALER [Suspect]
     Indication: ASTHMA
     Route: 055
  2. ACETYLSALICYLIC ACID SRT [Concomitant]
  3. CLONAZEPAM [Concomitant]
  4. WARFARIN SODIUM [Concomitant]
  5. LISINOPRIL [Concomitant]
  6. OMEPRAZOLE [Concomitant]
  7. SOTALOL HCL [Concomitant]
  8. LATANOPROST [Concomitant]
  9. MONTELUKAST [Concomitant]
  10. PAIN MEDICATION [Concomitant]

REACTIONS (1)
  - DYSPNOEA [None]
